FAERS Safety Report 4614961-9 (Version None)
Quarter: 2005Q1

REPORT INFORMATION
  Report Type: 
  Country: None (occurrence: None)
  Receive Date: 20050318
  Receipt Date: 20050318
  Transmission Date: 20050727
  Serious: No
  Sender: FDA-Public Use
  Company Number: None

PATIENT
  Age: 17 Year
  Sex: Female
  Weight: 53.0709 kg

DRUGS (2)
  1. METRONIDAZOLE 250MG TAB [Suspect]
     Indication: HELICOBACTER INFECTION
     Dosage: 2 X A DAY
     Dates: start: 20040727, end: 20040805
  2. . [Concomitant]

REACTIONS (6)
  - DYSPNOEA [None]
  - FATIGUE [None]
  - HYPOAESTHESIA [None]
  - JOINT HYPEREXTENSION [None]
  - MUSCLE SPASMS [None]
  - PAIN [None]
